FAERS Safety Report 7065425-7 (Version None)
Quarter: 2010Q4

REPORT INFORMATION
  Report Type: 
  Country: None (occurrence: None)
  Receive Date: 20101027
  Receipt Date: 20101020
  Transmission Date: 20110411
  Serious: Yes (Other)
  Sender: FDA-Public Use
  Company Number: JP-ABBOTT-10P-087-0662368-00

PATIENT
  Sex: Male

DRUGS (6)
  1. CLARITH TAB [Suspect]
     Indication: COUGH
     Dosage: 4 TABLETS DAILY
     Route: 048
     Dates: start: 20100426, end: 20100501
  2. CLARITH TAB [Suspect]
     Indication: OROPHARYNGEAL PAIN
  3. PL GRANULE [Suspect]
     Indication: OROPHARYNGEAL PAIN
     Dosage: 4 TABLETS DAILY
     Route: 048
     Dates: start: 20100426, end: 20100501
  4. PL GRANULE [Suspect]
     Indication: COUGH
  5. HUSCODE [Suspect]
     Indication: OROPHARYNGEAL PAIN
     Dosage: 6 TABLETS DAILY
     Route: 048
     Dates: start: 20100426
  6. HUSCODE [Suspect]
     Indication: COUGH

REACTIONS (1)
  - EOSINOPHILIC PNEUMONIA [None]
